FAERS Safety Report 6611656-7 (Version None)
Quarter: 2010Q1

REPORT INFORMATION
  Report Type: 
  Country: None (occurrence: None)
  Receive Date: 20100303
  Receipt Date: 20100225
  Transmission Date: 20100710
  Serious: Yes (Hospitalization)
  Sender: FDA-Public Use
  Company Number: US-RB-003467-10

PATIENT
  Age: 49 Year
  Sex: Female

DRUGS (1)
  1. SUBOXONE [Suspect]
     Route: 060
     Dates: start: 20091009, end: 20091009

REACTIONS (4)
  - FACIAL PALSY [None]
  - HYPERTENSION [None]
  - HYPOAESTHESIA [None]
  - SWOLLEN TONGUE [None]
